FAERS Safety Report 4292559-2 (Version None)
Quarter: 2004Q1

REPORT INFORMATION
  Report Type: 
  Country: None (occurrence: None)
  Receive Date: 20040126
  Receipt Date: 20031020
  Transmission Date: 20041129
  Serious: No
  Sender: FDA-Public Use
  Company Number: USA031050340

PATIENT
  Age: 68 Year
  Sex: Female

DRUGS (6)
  1. FORTEO [Suspect]
     Dates: start: 20030820
  2. DETROL LA(TOLTERODINE L-TARTRATE) [Concomitant]
  3. COZAAR [Concomitant]
  4. ALLEGRA [Concomitant]
  5. BEXTRA [Concomitant]
  6. FLONASE [Concomitant]

REACTIONS (5)
  - ASTHENIA [None]
  - HYPERTENSION [None]
  - INJECTION SITE HAEMORRHAGE [None]
  - INJECTION SITE RASH [None]
  - NAUSEA [None]
